FAERS Safety Report 5116398-5 (Version None)
Quarter: 2006Q3

REPORT INFORMATION
  Report Type: 
  Country: None (occurrence: None)
  Receive Date: 20060928
  Receipt Date: 20060918
  Transmission Date: 20061208
  Serious: Yes (Other)
  Sender: FDA-Public Use
  Company Number: US-JNJFOC-20060904688

PATIENT
  Sex: Female
  Weight: 77.11 kg

DRUGS (12)
  1. DURAGESIC-100 [Suspect]
     Route: 062
  2. DURAGESIC-100 [Suspect]
     Indication: NECK PAIN
     Route: 062
  3. FENTANYL [Suspect]
     Indication: NECK PAIN
     Route: 062
  4. CYMBALTA [Concomitant]
     Indication: DEPRESSION
     Route: 048
  5. PROTONIX [Concomitant]
     Indication: GASTRIC ULCER
     Route: 048
  6. NEURONTIN [Concomitant]
     Indication: NEURALGIA
     Route: 048
  7. XANAX [Concomitant]
     Indication: SLEEP DISORDER
     Route: 048
  8. PREDNISONE [Concomitant]
     Indication: NECK PAIN
     Route: 048
  9. ZANAFLEX [Concomitant]
     Indication: MUSCLE SPASMS
     Route: 048
  10. IMITREX [Concomitant]
     Indication: HEADACHE
     Route: 048
  11. IMITREX [Concomitant]
     Indication: MIGRAINE
     Route: 048
  12. ZOFRAN [Concomitant]
     Indication: NAUSEA
     Route: 048

REACTIONS (5)
  - APPLICATION SITE DERMATITIS [None]
  - BACK PAIN [None]
  - DENTAL CARIES [None]
  - DRY MOUTH [None]
  - INAPPROPRIATE SCHEDULE OF DRUG ADMINISTRATION [None]
